FAERS Safety Report 9637527 (Version 2)
Quarter: 2013Q4

REPORT INFORMATION
  Report Type: Report from Study
  Country: US (occurrence: US)
  Receive Date: 20131022
  Receipt Date: 20131022
  Transmission Date: 20140711
  Serious: Yes (Other)
  Sender: FDA-Public Use
  Company Number: PHEH2013US012169

PATIENT
  Sex: Female

DRUGS (5)
  1. AFINITOR [Suspect]
     Indication: BREAST CANCER METASTATIC
     Route: 048
     Dates: start: 20130206
  2. XGEVA [Concomitant]
  3. ALEVE [Concomitant]
  4. VIT D [Concomitant]
  5. CALIUM//CALCIUM CARBONATE [Concomitant]

REACTIONS (8)
  - Osteonecrosis of jaw [Unknown]
  - Dental caries [Unknown]
  - Dry throat [Unknown]
  - Constipation [Unknown]
  - Epistaxis [Unknown]
  - Dry mouth [Unknown]
  - Stomatitis [Unknown]
  - Mouth ulceration [Unknown]
